FAERS Safety Report 5263047-1 (Version None)
Quarter: 2007Q1

REPORT INFORMATION
  Report Type: 
  Country: None (occurrence: None)
  Receive Date: 20070312
  Receipt Date: 20070228
  Transmission Date: 20070707
  Serious: Yes (Hospitalization)
  Sender: FDA-Public Use
  Company Number: AU-PFIZER INC-2007016394

PATIENT
  Sex: Male
  Weight: 86.5 kg

DRUGS (2)
  1. SU-011,248 [Suspect]
     Indication: RENAL CELL CARCINOMA STAGE UNSPECIFIED
     Route: 048
     Dates: start: 20070130, end: 20070220
  2. ANPEC [Concomitant]
     Route: 048

REACTIONS (1)
  - GAIT DISTURBANCE [None]
